FAERS Safety Report 19847427 (Version 2)
Quarter: 2021Q4

REPORT INFORMATION
  Report Type: Spontaneous
  Country: US (occurrence: US)
  Receive Date: 20210917
  Receipt Date: 20211011
  Transmission Date: 20220303
  Serious: Yes (Hospitalization)
  Sender: FDA-Public Use
  Company Number: US-PFIZER INC-2020287775

PATIENT
  Age: 71 Year
  Sex: Female

DRUGS (3)
  1. LYRICA [Suspect]
     Active Substance: PREGABALIN
     Indication: Polyneuropathy
     Dosage: 75 MG, 2X/DAY
     Route: 048
  2. LYRICA [Suspect]
     Active Substance: PREGABALIN
     Indication: Breakthrough pain
     Dosage: 75 MG, 1X/DAY (3PM)
     Route: 048
  3. LYRICA [Suspect]
     Active Substance: PREGABALIN
     Indication: Neuropathy peripheral

REACTIONS (3)
  - Dizziness [Unknown]
  - Fall [Unknown]
  - Intentional product misuse [Unknown]
